FAERS Safety Report 23452100 (Version 1)
Quarter: 2024Q1

REPORT INFORMATION
  Report Type: Spontaneous
  Country: IT (occurrence: IT)
  Receive Date: 20240129
  Receipt Date: 20240129
  Transmission Date: 20240409
  Serious: Yes (Other)
  Sender: FDA-Public Use
  Company Number: IT-UCBSA-2024004223

PATIENT
  Sex: Male

DRUGS (1)
  1. BIMEKIZUMAB [Suspect]
     Active Substance: BIMEKIZUMAB
     Indication: Product used for unknown indication
     Dosage: UNK

REACTIONS (4)
  - Herpes virus infection [Recovering/Resolving]
  - Dysphagia [Recovering/Resolving]
  - Oropharyngeal pain [Recovering/Resolving]
  - Dysgeusia [Recovering/Resolving]
